FAERS Safety Report 15404094 (Version 1)
Quarter: 2018Q3

REPORT INFORMATION
  Report Type: Spontaneous
  Country: US (occurrence: US)
  Receive Date: 20180919
  Receipt Date: 20180919
  Transmission Date: 20181010
  Serious: Yes (Other)
  Sender: FDA-Public Use
  Company Number: US-AVADEL SPECIALTY PHARMACEUTICALS, LLC-2018AVA00278

PATIENT
  Age: 80 Year
  Sex: Female
  Weight: 74.38 kg

DRUGS (7)
  1. NOCTIVA [Suspect]
     Active Substance: DESMOPRESSIN ACETATE
     Indication: NOCTURIA
     Dosage: 0.83 MICROGRAM IN EACH NOSTRIL, 1X/DAY 30 MINUTES BEFORE BED
     Route: 045
     Dates: start: 201807, end: 20180719
  2. METOPROLOL. [Concomitant]
     Active Substance: METOPROLOL
  3. NOCTIVA [Suspect]
     Active Substance: DESMOPRESSIN ACETATE
     Dosage: 0.83 MICROGRAM IN EACH NOSTRIL, 1X/DAY 30 MINUTES BEFORE BED
     Route: 045
     Dates: start: 201807, end: 201808
  4. PLAVIX [Concomitant]
     Active Substance: CLOPIDOGREL BISULFATE
  5. TRAMADOL. [Concomitant]
     Active Substance: TRAMADOL
  6. HYZAAR [Concomitant]
     Active Substance: HYDROCHLOROTHIAZIDE\LOSARTAN POTASSIUM
  7. LIPITOR [Concomitant]
     Active Substance: ATORVASTATIN CALCIUM

REACTIONS (3)
  - Atrial fibrillation [Recovered/Resolved]
  - Drug effect delayed [Recovered/Resolved]
  - Blood potassium decreased [Recovered/Resolved]

NARRATIVE: CASE EVENT DATE: 201807
